FAERS Safety Report 6993582-7 (Version None)
Quarter: 2010Q3

REPORT INFORMATION
  Report Type: 
  Country: None (occurrence: None)
  Receive Date: 20100917
  Receipt Date: 20100910
  Transmission Date: 20110219
  Serious: Yes (Other)
  Sender: FDA-Public Use
  Company Number: PHHO2010BR13815

PATIENT
  Sex: Male

DRUGS (2)
  1. TASIGNA [Suspect]
     Indication: CHRONIC MYELOID LEUKAEMIA
     Dosage: 400 MG, BID
     Route: 048
     Dates: start: 20070509, end: 20081031
  2. TASIGNA [Suspect]
     Dosage: 600 MG, BID
     Route: 048
     Dates: start: 20081101

REACTIONS (2)
  - CHLOROMA [None]
  - NEOPLASM MALIGNANT [None]
